FAERS Safety Report 6243480-1 (Version None)
Quarter: 2009Q2

REPORT INFORMATION
  Report Type: 
  Country: None (occurrence: None)
  Receive Date: 20090624
  Receipt Date: 20090619
  Transmission Date: 20091009
  Serious: Yes (Hospitalization)
  Sender: FDA-Public Use
  Company Number: FR-AVENTIS-200912278FR

PATIENT
  Age: 78 Year
  Sex: Male

DRUGS (3)
  1. LASIX [Suspect]
     Route: 048
  2. CELEBREX [Suspect]
     Route: 048
     Dates: start: 20090101, end: 20090201
  3. IRBESARTAN [Suspect]
     Route: 048
     Dates: end: 20090206

REACTIONS (1)
  - RENAL FAILURE ACUTE [None]
